FAERS Safety Report 4658681-3 (Version None)
Quarter: 2005Q2

REPORT INFORMATION
  Report Type: 
  Country: None (occurrence: None)
  Receive Date: 20050510
  Receipt Date: 20050510
  Transmission Date: 20051028
  Serious: Yes (Life-Threatening)
  Sender: FDA-Public Use
  Company Number: None

PATIENT
  Age: 57 Year
  Sex: Male

DRUGS (5)
  1. TNKASE   50MG   GENENTECH [Suspect]
     Indication: ACUTE MYOCARDIAL INFARCTION
     Dosage: 40MG  ONCE  INTRAVENOU
     Route: 042
     Dates: start: 20050104, end: 20050104
  2. REOPRO   2MG/ML   LILLY [Suspect]
     Indication: CORONARY ARTERIAL STENT INSERTION
     Dosage: 0.125MCG/KG  ONCE  INTRAVENOU
     Route: 042
     Dates: start: 20050104, end: 20050104
  3. HEPARIN [Concomitant]
  4. ASPIRIN [Concomitant]
  5. CLOPIDOGREL BISULFATE [Concomitant]

REACTIONS (4)
  - HAEMATEMESIS [None]
  - HAEMOGLOBIN DECREASED [None]
  - ILEUS [None]
  - SHOCK HAEMORRHAGIC [None]
